FAERS Safety Report 22275940 (Version 1)
Quarter: 2023Q2

REPORT INFORMATION
  Report Type: Spontaneous
  Country: US (occurrence: None)
  Receive Date: 20230501
  Receipt Date: 20230501
  Transmission Date: 20230722
  Serious: No
  Sender: FDA-Public Use
  Company Number: None

PATIENT
  Age: 33 Year
  Sex: Female
  Weight: 79.65 kg

DRUGS (4)
  1. ACCRUFER [Suspect]
     Active Substance: FERRIC MALTOL
     Indication: Anaemia
     Dosage: OTHER QUANTITY : 1 CAPSULE(S);?FREQUENCY : DAILY;?
     Route: 048
     Dates: start: 20230429, end: 20230430
  2. PROAIR HFA [Concomitant]
     Active Substance: ALBUTEROL SULFATE
  3. NATURE MADE PRENATAL FOLIC ACID W/ DHA [Concomitant]
  4. BEAR LOW DOSE ASPIRIN [Concomitant]

REACTIONS (4)
  - Loss of consciousness [None]
  - Tremor [None]
  - Dizziness [None]
  - Gait inability [None]

NARRATIVE: CASE EVENT DATE: 20230430
